FAERS Safety Report 16740336 (Version 1)
Quarter: 2019Q3

REPORT INFORMATION
  Report Type: Spontaneous
  Country: US (occurrence: US)
  Receive Date: 20190826
  Receipt Date: 20190826
  Transmission Date: 20191005
  Serious: No
  Sender: FDA-Public Use
  Company Number: US-PFIZER INC-2019361908

PATIENT
  Age: 67 Year
  Sex: Female

DRUGS (1)
  1. EUCRISA [Suspect]
     Active Substance: CRISABOROLE
     Indication: DERMATITIS ATOPIC
     Dosage: UNK [USING IT MORE THAN TWICE DAILY]

REACTIONS (4)
  - Application site erosion [Unknown]
  - Application site swelling [Unknown]
  - Intentional product misuse [Unknown]
  - Therapeutic product effect incomplete [Unknown]
